FAERS Safety Report 6726113-7 (Version None)
Quarter: 2010Q2

REPORT INFORMATION
  Report Type: 
  Country: None (occurrence: None)
  Receive Date: 20100514
  Receipt Date: 20100505
  Transmission Date: 20101027
  Serious: Yes (Hospitalization, Other)
  Sender: FDA-Public Use
  Company Number: DE-PFIZER INC-2010036847

PATIENT
  Age: 54 Year
  Sex: Female
  Weight: 65 kg

DRUGS (2)
  1. CHAMPIX [Suspect]
     Indication: SMOKING CESSATION THERAPY
     Dosage: 0.5 MG, 1X/DAY
     Route: 048
     Dates: start: 20100312, end: 20100313
  2. LEVOTHYROXINE SODIUM [Concomitant]
     Indication: HYPOTHYROIDISM
     Dosage: 1X/DAY

REACTIONS (7)
  - CHEST PAIN [None]
  - DERMATITIS ALLERGIC [None]
  - DYSPNOEA [None]
  - GENERAL PHYSICAL HEALTH DETERIORATION [None]
  - LEUKOCYTOSIS [None]
  - PAINFUL RESPIRATION [None]
  - PRURITUS [None]
